FAERS Safety Report 4383344-1 (Version None)
Quarter: 2004Q2

REPORT INFORMATION
  Report Type: 
  Country: None (occurrence: None)
  Receive Date: 20040618
  Receipt Date: 20040527
  Transmission Date: 20050107
  Serious: Yes (Other)
  Sender: FDA-Public Use
  Company Number: US_010259249

PATIENT
  Age: 71 Year
  Sex: Female

DRUGS (3)
  1. EVISTA [Suspect]
     Indication: OSTEOPOROSIS
     Dates: start: 19990101
  2. HUMULIN 70/30 [Suspect]
     Indication: DIABETES MELLITUS
     Dosage: 18 U DAY
  3. HUMALOG [Suspect]
     Indication: DIABETES MELLITUS
     Dates: start: 20020701

REACTIONS (12)
  - ABDOMINAL DISTENSION [None]
  - ANAEMIA [None]
  - BLOOD GLUCOSE DECREASED [None]
  - BLOOD GLUCOSE INCREASED [None]
  - FEELING ABNORMAL [None]
  - HEPATOCELLULAR DAMAGE [None]
  - HYPERTENSION [None]
  - LIVER DISORDER [None]
  - OESOPHAGEAL CARCINOMA [None]
  - OSTEOPOROSIS [None]
  - PAIN IN EXTREMITY [None]
  - RENAL IMPAIRMENT [None]
